FAERS Safety Report 6416167-X (Version None)
Quarter: 2009Q4

REPORT INFORMATION
  Report Type: 
  Country: None (occurrence: None)
  Receive Date: 20091023
  Receipt Date: 20091001
  Transmission Date: 20100525
  Serious: Yes (Hospitalization)
  Sender: FDA-Public Use
  Company Number: M0900524

PATIENT
  Age: 76 Year
  Sex: Female

DRUGS (2)
  1. KLOR-CON [Suspect]
     Indication: BLOOD POTASSIUM DECREASED
     Dosage: 2 IN 1 D, ORAL
     Route: 048
     Dates: start: 20090901
  2. PREVACID [Concomitant]

REACTIONS (4)
  - EPISTAXIS [None]
  - GASTRITIS [None]
  - OESOPHAGITIS [None]
  - PANCREATITIS [None]
